FAERS Safety Report 7357409-6 (Version None)
Quarter: 2011Q1

REPORT INFORMATION
  Report Type: 
  Country: None (occurrence: None)
  Receive Date: 20110317
  Receipt Date: 20110314
  Transmission Date: 20110831
  Serious: Yes (Other)
  Sender: FDA-Public Use
  Company Number: ES-PFIZER INC-2011055297

PATIENT
  Age: 49 Year
  Sex: Male

DRUGS (1)
  1. SOLU-MODERIN [Suspect]
     Indication: MULTIPLE SCLEROSIS
     Dosage: 500 MG, UNK
     Route: 048
     Dates: start: 20110110, end: 20110114

REACTIONS (1)
  - DYSPHONIA [None]
